FAERS Safety Report 4645582-X (Version None)
Quarter: 2005Q2

REPORT INFORMATION
  Report Type: 
  Country: None (occurrence: None)
  Receive Date: 20050331
  Receipt Date: 20050119
  Transmission Date: 20051028
  Serious: Yes (Hospitalization)
  Sender: FDA-Public Use
  Company Number: 05P-163-0287406

PATIENT
  Age: 43 Year
  Sex: Male

DRUGS (12)
  1. HUMIRA [Suspect]
     Indication: RHEUMATOID ARTHRITIS
     Dosage: 40 MG, 1 IN 2 WK, SUBCUTANEOUS, 40 MG 1 IN 2 WK SUBCUTANEOUS
     Route: 058
     Dates: start: 20030314, end: 20041201
  2. HUMIRA [Suspect]
     Indication: RHEUMATOID ARTHRITIS
     Dosage: 40 MG, 1 IN 2 WK, SUBCUTANEOUS, 40 MG 1 IN 2 WK SUBCUTANEOUS
     Route: 058
     Dates: start: 20040110
  3. FUROSEMIDE [Concomitant]
  4. LEVOTHYROXINE SODIUM [Concomitant]
  5. INSULIN LISPRO [Concomitant]
  6. EPOGEN [Concomitant]
  7. PRED [Concomitant]
  8. PANTOPRAZOLE [Concomitant]
  9. LISONOPRIL [Concomitant]
  10. AMLODIPINE BESYLATE [Concomitant]
  11. LABETALOL HCL [Concomitant]
  12. HYDRALAZINE [Concomitant]

REACTIONS (2)
  - HYPERTENSIVE ENCEPHALOPATHY [None]
  - URINARY TRACT INFECTION [None]
